FAERS Safety Report 4777862-1 (Version None)
Quarter: 2005Q3

REPORT INFORMATION
  Report Type: 
  Country: None (occurrence: None)
  Receive Date: 20050926
  Receipt Date: 20050915
  Transmission Date: 20060218
  Serious: Yes (Hospitalization)
  Sender: FDA-Public Use
  Company Number: CH-BOEHRINGER INGELHEIM PHARMACEUTICALS, INC.-2005-DE-03790SI

PATIENT
  Age: 37 Year
  Sex: Female

DRUGS (4)
  1. VIRAMUNE [Suspect]
     Indication: HIV INFECTION
     Route: 048
     Dates: start: 20050127, end: 20050214
  2. VIRAMUNE [Suspect]
     Route: 048
     Dates: start: 20050214, end: 20050228
  3. 3TC [Concomitant]
     Indication: HIV INFECTION
     Route: 048
     Dates: start: 20050127, end: 20050228
  4. VIREAD [Concomitant]
     Indication: HIV INFECTION
     Route: 048
     Dates: start: 20050127, end: 20050228

REACTIONS (12)
  - ABORTION INDUCED [None]
  - CHROMATURIA [None]
  - FOETAL DISORDER [None]
  - HEPATOCELLULAR DAMAGE [None]
  - HEPATOTOXICITY [None]
  - INFLUENZA LIKE ILLNESS [None]
  - JAUNDICE [None]
  - PANCREATIC DISORDER [None]
  - PLACENTAL DISORDER [None]
  - PLACENTAL INSUFFICIENCY [None]
  - PYREXIA [None]
  - THROMBOSIS [None]
